FAERS Safety Report 6030941-3 (Version None)
Quarter: 2009Q1

REPORT INFORMATION
  Report Type: 
  Country: None (occurrence: None)
  Receive Date: 20090106
  Receipt Date: 20081226
  Transmission Date: 20090719
  Serious: Yes (Hospitalization)
  Sender: FDA-Public Use
  Company Number: 2008JP005710

PATIENT
  Age: 72 Year
  Sex: Female
  Weight: 39 kg

DRUGS (1)
  1. VESICARE [Suspect]
     Indication: HYPERTONIC BLADDER
     Dosage: 5 MG, UID/QD, ORAL
     Route: 048
     Dates: start: 20081111, end: 20081112

REACTIONS (4)
  - ESCHERICHIA URINARY TRACT INFECTION [None]
  - HYPOPHAGIA [None]
  - PYELONEPHRITIS [None]
  - URINARY INCONTINENCE [None]
